FAERS Safety Report 5152413-0 (Version None)
Quarter: 2006Q4

REPORT INFORMATION
  Report Type: 
  Country: None (occurrence: None)
  Receive Date: 20061116
  Receipt Date: 20060502
  Transmission Date: 20070319
  Serious: Yes (Hospitalization)
  Sender: FDA-Public Use
  Company Number: US-ELI_LILLY_AND_COMPANY-US200608005495

PATIENT
  Age: 46 Year
  Sex: Male
  Weight: 79.365 kg

DRUGS (3)
  1. BUPROPION HCL [Concomitant]
     Dates: start: 19940101
  2. PAROXETINE HCL [Concomitant]
     Dates: start: 19990101, end: 20000101
  3. ZYPREXA [Suspect]
     Dosage: UNK, 2/D
     Dates: start: 19960101, end: 20000101

REACTIONS (3)
  - CORONARY ARTERY BYPASS [None]
  - DIABETES MELLITUS [None]
  - METABOLIC DISORDER [None]
